FAERS Safety Report 9223595 (Version 7)
Quarter: 2015Q3

REPORT INFORMATION
  Report Type: Spontaneous
  Country: US (occurrence: US)
  Receive Date: 20130410
  Receipt Date: 20150902
  Transmission Date: 20151125
  Serious: Yes (Hospitalization, Disabling, Other)
  Sender: FDA-Public Use
  Company Number: US-009507513-1304USA003907

PATIENT
  Sex: Male

DRUGS (1)
  1. PROPECIA [Suspect]
     Active Substance: FINASTERIDE
     Indication: ALOPECIA
     Dosage: 1 MG, UNK
     Route: 048
     Dates: start: 19990510

REACTIONS (29)
  - Cognitive disorder [Not Recovered/Not Resolved]
  - Dyspepsia [Unknown]
  - Limb injury [Unknown]
  - Pyelonephritis [Unknown]
  - Gastrooesophageal reflux disease [Not Recovered/Not Resolved]
  - Chronic kidney disease [Not Recovered/Not Resolved]
  - Seizure [Not Recovered/Not Resolved]
  - Depression [Not Recovered/Not Resolved]
  - Renal failure [Unknown]
  - Diabetic ketoacidosis [Not Recovered/Not Resolved]
  - Diabetic neuropathy [Not Recovered/Not Resolved]
  - Urinary tract infection [Unknown]
  - Emotional disorder [Not Recovered/Not Resolved]
  - Type 2 diabetes mellitus [Unknown]
  - Dehydration [Unknown]
  - Dependence [Unknown]
  - Arthritis [Not Recovered/Not Resolved]
  - Hypertension [Unknown]
  - Erectile dysfunction [Not Recovered/Not Resolved]
  - Thrombocytopenia [Not Recovered/Not Resolved]
  - Asthenia [Not Recovered/Not Resolved]
  - Penile operation [Unknown]
  - Subdural haemorrhage [Unknown]
  - Benign prostatic hyperplasia [Not Recovered/Not Resolved]
  - Prostatitis [Unknown]
  - Anxiety [Not Recovered/Not Resolved]
  - Sexual dysfunction [Not Recovered/Not Resolved]
  - Hyperlipidaemia [Not Recovered/Not Resolved]
  - Palpitations [Not Recovered/Not Resolved]

NARRATIVE: CASE EVENT DATE: 19990510
